FAERS Safety Report 24867917 (Version 2)
Quarter: 2025Q1

REPORT INFORMATION
  Report Type: Spontaneous
  Country: JP (occurrence: JP)
  Receive Date: 20250121
  Receipt Date: 20250122
  Transmission Date: 20250409
  Serious: Yes (Other)
  Sender: MYLAN
  Company Number: JP-MYLANLABS-2025M1004110

PATIENT
  Age: 52 Year
  Sex: Male

DRUGS (1)
  1. GABAPENTIN [Suspect]
     Active Substance: GABAPENTIN
     Indication: Hiccups
     Dosage: 900 MILLIGRAM, QD (300 MG/8 HOURS)
     Route: 048
     Dates: end: 20241224

REACTIONS (4)
  - Delirium [Unknown]
  - Fall [Unknown]
  - Product use in unapproved indication [Unknown]
  - Overdose [Unknown]

NARRATIVE: CASE EVENT DATE: 20241224
